FAERS Safety Report 14343113 (Version 1)
Quarter: 2018Q1

REPORT INFORMATION
  Report Type: Report from Study
  Country: GB (occurrence: GB)
  Receive Date: 20180102
  Receipt Date: 20180102
  Transmission Date: 20180509
  Serious: Yes (Other)
  Sender: FDA-Public Use
  Company Number: GB-JNJFOC-20170929206

PATIENT
  Sex: Male

DRUGS (1)
  1. SIMPONI [Suspect]
     Active Substance: GOLIMUMAB
     Indication: PRODUCT USED FOR UNKNOWN INDICATION
     Route: 058

REACTIONS (5)
  - Pain [Recovering/Resolving]
  - Joint swelling [Recovering/Resolving]
  - Neoplasm malignant [Unknown]
  - Arthralgia [Recovering/Resolving]
  - Musculoskeletal pain [Recovering/Resolving]
